FAERS Safety Report 15530394 (Version 3)
Quarter: 2020Q4

REPORT INFORMATION
  Report Type: Spontaneous
  Country: US (occurrence: US)
  Receive Date: 20181018
  Receipt Date: 20201008
  Transmission Date: 20210113
  Serious: Yes (Other)
  Sender: FDA-Public Use
  Company Number: US-COOPERSURGICAL, INC.-US-2018CPS033332

PATIENT
  Age: 28 Year
  Sex: Female

DRUGS (2)
  1. BUPROPION HCL [Concomitant]
     Active Substance: BUPROPION HYDROCHLORIDE
     Indication: PRODUCT USED FOR UNKNOWN INDICATION
     Dosage: 300 MG, QD
     Route: 065
  2. PARAGARD T 380A [Suspect]
     Active Substance: COPPER
     Indication: PRODUCT USED FOR UNKNOWN INDICATION
     Dosage: UNK
     Route: 015
     Dates: start: 20120604

REACTIONS (15)
  - Embedded device [Not Recovered/Not Resolved]
  - Emotional distress [Unknown]
  - Foreign body in reproductive tract [Not Recovered/Not Resolved]
  - Device breakage [Not Recovered/Not Resolved]
  - Pain [Unknown]
  - Economic problem [Unknown]
  - Discomfort [Unknown]
  - Injury associated with device [Unknown]
  - Device expulsion [Recovered/Resolved]
  - Complication of device removal [Not Recovered/Not Resolved]
  - Reproductive complication associated with device [Unknown]
  - Anhedonia [Unknown]
  - Device dislocation [Recovered/Resolved]
  - Disability [Unknown]
  - Anxiety [Unknown]

NARRATIVE: CASE EVENT DATE: 20180911
